FAERS Safety Report 8179891-7 (Version None)
Quarter: 2012Q1

REPORT INFORMATION
  Report Type: 
  Country: None (occurrence: None)
  Receive Date: 20120302
  Receipt Date: 20120223
  Transmission Date: 20120608
  Serious: Yes (Hospitalization, Other)
  Sender: FDA-Public Use
  Company Number: FR-JNJFOC-20111200895

PATIENT
  Sex: Male
  Weight: 105 kg

DRUGS (7)
  1. FONDAPARINUX SODIUM [Concomitant]
     Indication: PHLEBITIS
     Route: 065
  2. ZYTIGA [Suspect]
     Indication: PROSTATE CANCER METASTATIC
     Route: 048
     Dates: start: 20111014, end: 20111215
  3. ARIXTRA [Concomitant]
     Indication: PHLEBITIS
     Route: 058
     Dates: start: 20111031
  4. OXYCONTIN [Concomitant]
     Indication: PAIN
     Route: 048
     Dates: start: 20111020, end: 20111215
  5. PAROXETINE HYDROCHLORIDE [Concomitant]
     Indication: DEPRESSION
     Route: 048
     Dates: start: 20111003, end: 20111215
  6. NEXIUM [Concomitant]
     Indication: GASTRITIS
     Route: 048
     Dates: start: 20111003, end: 20111215
  7. ZOPICLONE [Concomitant]
     Indication: INSOMNIA
     Route: 048
     Dates: start: 20100101, end: 20111215

REACTIONS (2)
  - CONFUSIONAL STATE [None]
  - ARTERIAL THROMBOSIS LIMB [None]
